FAERS Safety Report 8817187 (Version 2)
Quarter: 2012Q4

REPORT INFORMATION
  Report Type: 
  Country: US (occurrence: US)
  Receive Date: 20121001
  Receipt Date: 20121109
  Transmission Date: 20130627
  Serious: Yes (Other)
  Sender: FDA-Public Use
  Company Number: US-PFIZER INC-2012240326

PATIENT
  Age: 42 Year
  Sex: Female
  Weight: 104 kg

DRUGS (1)
  1. ZOLOFT [Suspect]
     Indication: DEPRESSION
     Dosage: 150 mg, daily
     Dates: start: 2000

REACTIONS (1)
  - Arthritis [Unknown]
